FAERS Safety Report 5957579-8 (Version None)
Quarter: 2008Q4

REPORT INFORMATION
  Report Type: 
  Country: None (occurrence: None)
  Receive Date: 20081117
  Receipt Date: 20081117
  Transmission Date: 20090506
  Serious: Yes (Other)
  Sender: FDA-Public Use
  Company Number: None

PATIENT
  Sex: Male
  Weight: 88.4514 kg

DRUGS (5)
  1. NAPROXEN [Suspect]
     Indication: NERVE INJURY
     Dosage: 500MG 1 EVERY 12 HOURS
     Dates: start: 20081012, end: 20081018
  2. CITALOPRAM HYDROBROMIDE [Suspect]
     Indication: DEPRESSION
     Dosage: 10 MG 1 DAILY
     Dates: start: 20081001, end: 20081016
  3. CITALOPRAM HYDROBROMIDE [Suspect]
     Indication: PREMATURE EJACULATION
     Dosage: 10 MG 1 DAILY
     Dates: start: 20081001, end: 20081016
  4. PEROXITENE [Concomitant]
  5. LAMOTRIGINE [Concomitant]

REACTIONS (5)
  - AGITATION [None]
  - ANGER [None]
  - COMPULSIONS [None]
  - DEPRESSION [None]
  - MILK ALLERGY [None]
